FAERS Safety Report 10009235 (Version 3)
Quarter: 2015Q3

REPORT INFORMATION
  Report Type: Spontaneous
  Country: US (occurrence: US)
  Receive Date: 20140313
  Receipt Date: 20150814
  Transmission Date: 20151125
  Serious: No
  Sender: FDA-Public Use
  Company Number: US-GILEAD-2013-0074526

PATIENT
  Age: 76 Year
  Sex: Female

DRUGS (1)
  1. LETAIRIS [Suspect]
     Active Substance: AMBRISENTAN
     Indication: PRODUCT USED FOR UNKNOWN INDICATION
     Dosage: 5 MG, QD
     Dates: start: 20130211

REACTIONS (15)
  - Constipation [Unknown]
  - Knee arthroplasty [Unknown]
  - Diverticulitis [Unknown]
  - Dyspnoea [Unknown]
  - Oedema peripheral [Unknown]
  - Arthropathy [Unknown]
  - Rheumatoid arthritis [Unknown]
  - Varicose vein [Unknown]
  - Seasonal allergy [Unknown]
  - Dysentery [Unknown]
  - Shoulder arthroplasty [Unknown]
  - Asthma [Unknown]
  - Pulmonary mass [Unknown]
  - Venous operation [Unknown]
  - Nausea [Unknown]
